FAERS Safety Report 24416287 (Version 1)
Quarter: 2024Q4

REPORT INFORMATION
  Report Type: Spontaneous
  Country: US (occurrence: None)
  Receive Date: 20241008
  Receipt Date: 20241008
  Transmission Date: 20250115
  Serious: Yes (Death)
  Sender: Public
  Company Number: None

PATIENT
  Sex: Male

DRUGS (11)
  1. VELTASSA [Suspect]
     Active Substance: PATIROMER
     Indication: Hyperkalaemia
     Dates: start: 20220123
  2. AMLODIPINE [Concomitant]
     Active Substance: AMLODIPINE BESYLATE
  3. ALLOPURINOL [Concomitant]
     Active Substance: ALLOPURINOL
  4. carvidilol 6.25mg [Concomitant]
  5. mirtazapine 15mg [Concomitant]
  6. tamsulosin 0.4mg [Concomitant]
  7. prednisone 1mg [Concomitant]
  8. fish oil 1000mg [Concomitant]
  9. centrum silver [Concomitant]
  10. stool softener 100mg [Concomitant]
  11. aspirin 81mg Viramin D 1000U [Concomitant]

REACTIONS (1)
  - Death [None]
